FAERS Safety Report 15285186 (Version 2)
Quarter: 2025Q4

REPORT INFORMATION
  Report Type: Spontaneous
  Country: US (occurrence: US)
  Receive Date: 20180816
  Receipt Date: 20251024
  Transmission Date: 20260118
  Serious: Yes (Hospitalization, Other)
  Sender: QILU ANTIBIOTICS PHARMACEUTICAL
  Company Number: None

PATIENT
  Age: 61 Year
  Sex: Female

DRUGS (2)
  1. CEFEPIME HYDROCHLORIDE [Suspect]
     Active Substance: CEFEPIME HYDROCHLORIDE
     Indication: Prostate infection
     Dosage: UNK (CONTINOUS FOR 6 WEEKS)
     Route: 065
  2. CEFEPIME HYDROCHLORIDE [Suspect]
     Active Substance: CEFEPIME HYDROCHLORIDE
     Indication: Pseudomonas infection

REACTIONS (8)
  - Acute kidney injury [Unknown]
  - Unresponsive to stimuli [Unknown]
  - Status epilepticus [Recovered/Resolved]
  - Mental status changes [Recovered/Resolved]
  - Aphasia [Unknown]
  - Confusional state [Unknown]
  - Nausea [Unknown]
  - Vomiting [Unknown]
